FAERS Safety Report 9187053 (Version 2)
Quarter: 2013Q2

REPORT INFORMATION
  Report Type: Spontaneous
  Country: US (occurrence: US)
  Receive Date: 20130325
  Receipt Date: 20130606
  Transmission Date: 20140414
  Serious: Yes (Hospitalization, Other)
  Sender: FDA-Public Use
  Company Number: US-PFIZER INC-2013093030

PATIENT
  Age: 27 Year
  Sex: Female

DRUGS (2)
  1. CHANTIX [Suspect]
     Dosage: 1 MG, UNK (CONTINUING MONTH PACK)
     Dates: start: 20090504
  2. CHANTIX [Suspect]
     Dosage: UNK
     Dates: start: 20090514, end: 20090612

REACTIONS (2)
  - Intentional overdose [Unknown]
  - Suicide attempt [Unknown]
